FAERS Safety Report 15197354 (Version 1)
Quarter: 2018Q3

REPORT INFORMATION
  Report Type: Spontaneous
  Country: IT (occurrence: IT)
  Receive Date: 20180725
  Receipt Date: 20180725
  Transmission Date: 20181010
  Serious: Yes (Hospitalization)
  Sender: FDA-Public Use
  Company Number: IT-MYLANLABS-2018M1053875

PATIENT
  Age: 76 Year
  Sex: Male

DRUGS (2)
  1. ATORVASTATIN [Suspect]
     Active Substance: ATORVASTATIN
     Indication: PRODUCT USED FOR UNKNOWN INDICATION
     Dosage: UNK (REGIMEN 1)
  2. INFLUENZA VACCINE INACT [Suspect]
     Active Substance: INFLUENZA VIRUS VACCINE
     Indication: INFLUENZA IMMUNISATION
     Dosage: UNK

REACTIONS (9)
  - Skin exfoliation [Unknown]
  - Rash [Unknown]
  - Rhabdomyolysis [Unknown]
  - Dermatitis [Unknown]
  - Drug interaction [Unknown]
  - Biopsy skin abnormal [Unknown]
  - Epidermal necrosis [Unknown]
  - Renal failure [Unknown]
  - Stevens-Johnson syndrome [Unknown]
